FAERS Safety Report 11123912 (Version 1)
Quarter: 2015Q2

REPORT INFORMATION
  Report Type: Spontaneous
  Country: US (occurrence: US)
  Receive Date: 20150520
  Receipt Date: 20150520
  Transmission Date: 20150821
  Serious: No
  Sender: FDA-Public Use
  Company Number: US-009507513-1505USA007399

PATIENT
  Sex: Male

DRUGS (4)
  1. ZOFRAN [Concomitant]
     Active Substance: ONDANSETRON HYDROCHLORIDE
  2. REMERON [Suspect]
     Active Substance: MIRTAZAPINE
     Indication: NAUSEA
     Dosage: STRENGTH 30MG, 30MG(1 TABLET), ONCE DAILY
     Route: 048
  3. REMERON [Suspect]
     Active Substance: MIRTAZAPINE
     Dosage: STRENGTH 15MG, DOSE/FREQUENCY UNSPECIFIED
     Route: 048
  4. NEOMYCIN [Concomitant]
     Active Substance: NEOMYCIN

REACTIONS (2)
  - Drug prescribing error [Unknown]
  - Somnolence [Not Recovered/Not Resolved]
